FAERS Safety Report 6474531-7 (Version None)
Quarter: 2009Q4

REPORT INFORMATION
  Report Type: 
  Country: None (occurrence: None)
  Receive Date: 20091204
  Receipt Date: 20091203
  Transmission Date: 20100525
  Serious: Yes (Other)
  Sender: FDA-Public Use
  Company Number: US-PFIZER INC-2008152187

PATIENT
  Age: 72 Year
  Sex: Male

DRUGS (3)
  1. LIPITOR [Suspect]
     Indication: TYPE IIA HYPERLIPIDAEMIA
     Dosage: 80MG
     Dates: end: 20081201
  2. METHOTREXATE SODIUM [Suspect]
     Indication: RHEUMATOID ARTHRITIS
  3. ALLOPURINOL [Concomitant]
     Dosage: UNK

REACTIONS (12)
  - CARDIAC FAILURE [None]
  - ERYTHEMA [None]
  - FALL [None]
  - HEPATIC FAILURE [None]
  - JOINT SWELLING [None]
  - KNEE ARTHROPLASTY [None]
  - MUSCLE ATROPHY [None]
  - MUSCULAR WEAKNESS [None]
  - MYALGIA [None]
  - PERIPHERAL VASCULAR DISORDER [None]
  - RENAL FAILURE [None]
  - RHEUMATOID ARTHRITIS [None]
